FAERS Safety Report 7868948 (Version 3)
Quarter: 2013Q2

REPORT INFORMATION
  Report Type: Spontaneous
  Country: US (occurrence: US)
  Receive Date: 20110324
  Receipt Date: 20130403
  Transmission Date: 20140414
  Serious: Yes (Hospitalization)
  Sender: FDA-Public Use
  Company Number: US-BAYER-2011-023876

PATIENT
  Age: 20 Year
  Sex: Female
  Weight: 54.42 kg

DRUGS (4)
  1. YAZ [Suspect]
     Indication: ACNE
     Dosage: UNK
     Dates: start: 200712, end: 20100502
  2. YAZ [Suspect]
     Indication: CONTRACEPTION
  3. IBUPROFEN [Concomitant]
     Dosage: 600 MG, EVERY 6 HOURS AS NEEDED
  4. PROPOXYPHENE NAPSYLATE W/PARACETAMOL [Concomitant]
     Dosage: 50-325 MG TABLETS; EVERY 8 HOURS, PRN

REACTIONS (5)
  - Gallbladder disorder [None]
  - Cholecystitis chronic [None]
  - Injury [None]
  - General physical health deterioration [None]
  - Pain [None]
